FAERS Safety Report 9934305 (Version 1)
Quarter: 2014Q1

REPORT INFORMATION
  Report Type: Spontaneous
  Country: GB (occurrence: GB)
  Receive Date: 20140228
  Receipt Date: 20140228
  Transmission Date: 20141002
  Serious: Yes (Other)
  Sender: FDA-Public Use
  Company Number: PHFR2014GB001730

PATIENT
  Age: 55 Year
  Sex: Male

DRUGS (4)
  1. IMATINIB [Suspect]
     Indication: CHRONIC MYELOID LEUKAEMIA
     Dosage: 400 MG, UNK
     Dates: start: 200410
  2. IMATINIB [Suspect]
     Dosage: 600 MG, UNK
  3. IMATINIB [Suspect]
     Dosage: 800 MG, QD (DAILY)
     Dates: end: 200803
  4. IMATINIB [Suspect]
     Dosage: 400 MG, UNK
     Dates: start: 200804

REACTIONS (7)
  - Bundle branch block right [Unknown]
  - Drug intolerance [Unknown]
  - Drug eruption [Unknown]
  - Pruritus [Unknown]
  - Rash erythematous [Not Recovered/Not Resolved]
  - Therapeutic response decreased [Unknown]
  - Diarrhoea [Unknown]
